FAERS Safety Report 23686137 (Version 2)
Quarter: 2024Q2

REPORT INFORMATION
  Report Type: Report from Study
  Country: IT (occurrence: IT)
  Receive Date: 20240329
  Receipt Date: 20240405
  Transmission Date: 20240715
  Serious: Yes (Death, Life-Threatening, Hospitalization, Disabling)
  Sender: FDA-Public Use
  Company Number: IT-SUN PHARMACEUTICAL INDUSTRIES LTD-2024RR-438757

PATIENT
  Age: 63 Year
  Sex: Male
  Weight: 97 kg

DRUGS (1)
  1. TILDRAKIZUMAB [Suspect]
     Active Substance: TILDRAKIZUMAB
     Indication: Psoriasis
     Dosage: 200 MILLIGRAM, DAILY
     Route: 058
     Dates: start: 20230801

REACTIONS (1)
  - Myocardial infarction [Fatal]

NARRATIVE: CASE EVENT DATE: 20240315
